FAERS Safety Report 7916064-4 (Version None)
Quarter: 2011Q4

REPORT INFORMATION
  Report Type: 
  Country: None (occurrence: None)
  Receive Date: 20111115
  Receipt Date: 20110215
  Transmission Date: 20120403
  Serious: Yes (Hospitalization)
  Sender: FDA-Public Use
  Company Number: PHHO2011US02987

PATIENT
  Age: 57 Year
  Sex: Female

DRUGS (28)
  1. ALPRAZOLAM [Concomitant]
     Dosage: 0.5 MG, UNK
     Dates: start: 20110824
  2. CITALOPRAM HYDROBROMIDE [Concomitant]
     Dosage: 20 MG, DAILY
  3. LIDOCAINE [Concomitant]
     Dosage: 10 ML, EVERY 6 WEEKS
     Dates: start: 20110128
  4. INSULIN [Concomitant]
     Dosage: UNK UKN, UNK
     Dates: start: 20110203
  5. PREDNISONE [Concomitant]
     Dosage: 10 MG, UNK
     Route: 048
     Dates: start: 20110203
  6. COLECALCIFEROL [Concomitant]
     Dosage: 1 CAPSULE EVERY WEEK
  7. PROGRAF [Concomitant]
     Dosage: 2 MG, BID
  8. VASOTEC [Concomitant]
     Dosage: 0.6 MG, UNK
     Route: 048
  9. VASOTEC [Concomitant]
     Dosage: 2.5 MG, UNK
     Route: 048
  10. PREDNISONE [Concomitant]
     Dosage: 5 MG, UNK
     Dates: start: 20110206
  11. DESONIDE [Concomitant]
     Dosage: 0.05 %, BID
  12. ESOMEPRAZOLE [Concomitant]
     Dosage: 40 MG, UNK
     Route: 048
  13. SODIUM CITRATE [Concomitant]
     Dosage: 500 MG, BID
     Route: 048
  14. ALBUTEROL [Concomitant]
     Dosage: 90MCG
     Dates: start: 20110824
  15. GLIPIZIDE [Concomitant]
     Dosage: 5 MG, UNK
  16. KENALOG [Concomitant]
     Dosage: UNK UKN, UNK
     Dates: start: 20101101
  17. NORCO [Concomitant]
     Dosage: 5 TO 325 MG TABLET
     Route: 048
  18. CLINDAMYCIN [Concomitant]
     Dosage: 300 MG, EVERY 6 HOURS
     Route: 048
     Dates: start: 20110203
  19. PREDNISONE [Concomitant]
     Dosage: 5 MG, UNK
     Dates: start: 20110203
  20. PREDNISONE [Concomitant]
     Dosage: 7.5 MG, UNK
     Route: 048
     Dates: start: 20010208
  21. FISH OIL [Concomitant]
     Dosage: UNK UKN, UNK
     Route: 048
  22. ZOLOFT [Concomitant]
     Dosage: UNK UKN, UNK
  23. AMBIEN [Concomitant]
     Dosage: 5 MG,BEDTIME
  24. MYFORTIC [Suspect]
     Dosage: UNK UKN, UNK
  25. AMLODIPINE [Concomitant]
     Dosage: 10 MG, UNK
     Route: 048
     Dates: start: 20110203
  26. LORTAB [Concomitant]
     Dosage: 15 ML,EVERY 6 HOURS
  27. ATORVASTATIN [Concomitant]
     Dosage: 10 MG, UNK
     Route: 048
     Dates: start: 20101111
  28. VASOTEC [Concomitant]
     Dosage: 5 MG, UNK
     Route: 048

REACTIONS (11)
  - ANGIOEDEMA [None]
  - FACE OEDEMA [None]
  - OROPHARYNGEAL PAIN [None]
  - LUDWIG ANGINA [None]
  - HYPERTENSION [None]
  - DYSPNOEA [None]
  - SWELLING [None]
  - OEDEMA [None]
  - LEUKOCYTOSIS [None]
  - BLOOD PRESSURE INCREASED [None]
  - DIABETES MELLITUS [None]
